FAERS Safety Report 20958454 (Version 1)
Quarter: 2022Q2

REPORT INFORMATION
  Report Type: Spontaneous
  Country: US (occurrence: None)
  Receive Date: 20220614
  Receipt Date: 20220614
  Transmission Date: 20220721
  Serious: No
  Sender: FDA-Public Use
  Company Number: None

PATIENT
  Sex: Male

DRUGS (5)
  1. ABIRATERONE ACETATE [Suspect]
     Active Substance: ABIRATERONE ACETATE
     Indication: Prostate cancer
     Dosage: FREQUENCY : DAILY;?
     Route: 048
     Dates: start: 20220323
  2. ATORVASTATIN CALCIUM [Concomitant]
  3. CALCIUM ACETATE (PHOS BINDER) [Concomitant]
  4. EPOETIN ALFA-EPBX [Concomitant]
  5. FAMOTIDINE [Concomitant]

REACTIONS (2)
  - Hypertension [None]
  - Hypotension [None]
